FAERS Safety Report 5311947-6 (Version None)
Quarter: 2007Q2

REPORT INFORMATION
  Report Type: 
  Country: None (occurrence: None)
  Receive Date: 20070430
  Receipt Date: 20060503
  Transmission Date: 20071010
  Serious: No
  Sender: FDA-Public Use
  Company Number: 2006UW08639

PATIENT
  Age: 65 Year
  Sex: Female
  Weight: 65.9 kg

DRUGS (8)
  1. NEXIUM [Suspect]
     Indication: GASTROOESOPHAGEAL REFLUX DISEASE
     Route: 048
  2. NEXIUM [Suspect]
     Indication: ULCER
     Route: 048
  3. PRILOSEC [Suspect]
     Indication: ULCER
     Route: 048
  4. PRILOSEC [Suspect]
     Indication: GASTROOESOPHAGEAL REFLUX DISEASE
     Route: 048
  5. PRILOSEC OTC [Suspect]
     Indication: ULCER
     Route: 048
     Dates: start: 20060401, end: 20060401
  6. PRILOSEC OTC [Suspect]
     Indication: GASTROOESOPHAGEAL REFLUX DISEASE
     Route: 048
     Dates: start: 20060401, end: 20060401
  7. PREVACID [Suspect]
     Indication: ULCER
  8. PREVACID [Suspect]
     Indication: GASTROOESOPHAGEAL REFLUX DISEASE

REACTIONS (10)
  - ANXIETY [None]
  - ASTHENIA [None]
  - DIZZINESS [None]
  - DYSPNOEA [None]
  - DYSSTASIA [None]
  - HEART RATE IRREGULAR [None]
  - LOSS OF CONSCIOUSNESS [None]
  - NERVOUSNESS [None]
  - STOMACH DISCOMFORT [None]
  - TREMOR [None]
